FAERS Safety Report 19033974 (Version 1)
Quarter: 2021Q1

REPORT INFORMATION
  Report Type: Spontaneous
  Country: JP (occurrence: JP)
  Receive Date: 20210319
  Receipt Date: 20210319
  Transmission Date: 20210420
  Serious: Yes (Death)
  Sender: FDA-Public Use
  Company Number: JP-BAUSCH-BL-2021-009240

PATIENT
  Age: 82 Year
  Sex: Male

DRUGS (2)
  1. CHOREAZINE TABLETS 12.5MG (TETRABENAZINE) [Suspect]
     Active Substance: TETRABENAZINE
     Indication: OFF LABEL USE
  2. CHOREAZINE TABLETS 12.5MG (TETRABENAZINE) [Suspect]
     Active Substance: TETRABENAZINE
     Indication: BALLISMUS
     Route: 048
     Dates: start: 20200428

REACTIONS (6)
  - Portal venous gas [Fatal]
  - Abdominal distension [Fatal]
  - Off label use [Unknown]
  - Pneumatosis intestinalis [Fatal]
  - Gastrointestinal ischaemia [Fatal]
  - Pyrexia [Fatal]

NARRATIVE: CASE EVENT DATE: 20200506
